FAERS Safety Report 13125429 (Version 1)
Quarter: 2017Q1

REPORT INFORMATION
  Report Type: Spontaneous
  Country: US (occurrence: US)
  Receive Date: 20170117
  Receipt Date: 20170117
  Transmission Date: 20170428
  Serious: Yes (Other)
  Sender: FDA-Public Use
  Company Number: None

PATIENT
  Age: 37 Year
  Sex: Female
  Weight: 99 kg

DRUGS (2)
  1. MOTRIN [Concomitant]
     Active Substance: IBUPROFEN
  2. SUBOXONE [Suspect]
     Active Substance: BUPRENORPHINE HYDROCHLORIDE\NALOXONE HYDROCHLORIDE
     Indication: DEPENDENCE
     Dosage: ?          QUANTITY:39 STRIP;?
     Route: 060
     Dates: start: 20160307

REACTIONS (4)
  - Pain [None]
  - Blister [None]
  - Stomatitis [None]
  - Swollen tongue [None]

NARRATIVE: CASE EVENT DATE: 20161109
